FAERS Safety Report 7811113-6 (Version None)
Quarter: 2011Q4

REPORT INFORMATION
  Report Type: 
  Country: None (occurrence: None)
  Receive Date: 20111013
  Receipt Date: 20110929
  Transmission Date: 20120403
  Serious: Yes (Hospitalization, Other)
  Sender: FDA-Public Use
  Company Number: JP-AMGEN-JPNSP2010006217

PATIENT
  Age: 62 Year
  Sex: Female

DRUGS (4)
  1. PREDNISOLONE [Concomitant]
     Dosage: 3 MG, QD
  2. ENBREL [Suspect]
     Indication: RHEUMATOID ARTHRITIS
     Dosage: 25 MG, QWK
     Route: 058
     Dates: start: 20070701, end: 20100701
  3. LOXOPROFEN [Concomitant]
     Dosage: UNK
  4. METHOTREXATE [Concomitant]
     Dosage: 4 MG, QWK

REACTIONS (4)
  - RESPIRATORY FAILURE [None]
  - PLEURAL EFFUSION [None]
  - LUPUS-LIKE SYNDROME [None]
  - HISTIOCYTOSIS HAEMATOPHAGIC [None]
